FAERS Safety Report 11799618 (Version 2)
Quarter: 2015Q4

REPORT INFORMATION
  Report Type: Spontaneous
  Country: FR (occurrence: FR)
  Receive Date: 20151203
  Receipt Date: 20151222
  Transmission Date: 20160305
  Serious: Yes (Hospitalization, Disabling, Other)
  Sender: FDA-Public Use
  Company Number: FR-BAXTER-2015BAX063912

PATIENT
  Age: 43 Year
  Sex: Male

DRUGS (40)
  1. PREDNISONE. [Suspect]
     Active Substance: PREDNISONE
     Dosage: D1 TO D4; INDUCTION CHEMOTHERAPY WITHIN THE PROTOCOL LL03
     Route: 065
     Dates: start: 20150529
  2. METHOTREXATE [Suspect]
     Active Substance: METHOTREXATE
     Route: 065
  3. HYDROCORTISONE. [Suspect]
     Active Substance: HYDROCORTISONE
     Indication: DIFFUSE LARGE B-CELL LYMPHOMA STAGE IV
     Route: 065
  4. VINCRISTINE SULFATE. [Suspect]
     Active Substance: VINCRISTINE SULFATE
     Dosage: D1;SECOND BLOCK OF THE FIRST CONSOLIDATION
     Route: 065
     Dates: start: 20150720
  5. PREDNISONE. [Suspect]
     Active Substance: PREDNISONE
     Indication: DIFFUSE LARGE B-CELL LYMPHOMA STAGE IV
     Dosage: D1;1ST CURE OF COP CHEMOTHERAPY
     Route: 065
     Dates: start: 20150522
  6. METHOTREXATE [Suspect]
     Active Substance: METHOTREXATE
     Dosage: D1
     Route: 037
     Dates: start: 20150707
  7. ARACYTINE [Suspect]
     Active Substance: CYTARABINE
     Route: 065
  8. DEPO-MEDROL [Suspect]
     Active Substance: METHYLPREDNISOLONE ACETATE
     Indication: DIFFUSE LARGE B-CELL LYMPHOMA STAGE IV
     Dosage: INDUCTION CHEMOTHERAPY WITHIN THE PROTOCOL LL03
     Route: 065
  9. DEPO-MEDROL [Suspect]
     Active Substance: METHYLPREDNISOLONE ACETATE
     Route: 065
  10. ENDOXAN 1000 MG, POUDRE POUR SOLUTION INJECTABLE [Suspect]
     Active Substance: CYCLOPHOSPHAMIDE
     Indication: DIFFUSE LARGE B-CELL LYMPHOMA STAGE IV
     Dosage: D1; 1ST CURE OF COP CHEMOTHERAPY
     Route: 065
     Dates: start: 20150522
  11. VINCRISTINE SULFATE. [Suspect]
     Active Substance: VINCRISTINE SULFATE
     Dosage: 1.5 MG/M2; ONCE A DAILY IN A SINGLE DOSE, D1
     Route: 042
     Dates: start: 20151001, end: 20151001
  12. ENDOXAN 1000 MG, POUDRE POUR SOLUTION INJECTABLE [Suspect]
     Active Substance: CYCLOPHOSPHAMIDE
     Dosage: D15 AND D16; INDUCTION CHEMOTHERAPY WITHIN THE PROTOCOL LL03
     Route: 065
  13. ENDOXAN 1000 MG, POUDRE POUR SOLUTION INJECTABLE [Suspect]
     Active Substance: CYCLOPHOSPHAMIDE
     Dosage: FROM D2 - D3
     Route: 042
     Dates: start: 20151002, end: 20151002
  14. SOLU-MEDROL [Suspect]
     Active Substance: METHYLPREDNISOLONE SODIUM SUCCINATE
     Indication: DIFFUSE LARGE B-CELL LYMPHOMA STAGE IV
     Dosage: ON D1, D2, D3, D4 AND D5
     Route: 042
     Dates: start: 20151001, end: 20151005
  15. L-ASPARAGINASE [Suspect]
     Active Substance: ASPARAGINASE
     Dosage: 100 U; D1
     Route: 065
     Dates: start: 20150803
  16. METHOTREXATE [Suspect]
     Active Substance: METHOTREXATE
     Dosage: TRIPLE LP
     Route: 065
  17. ARACYTINE [Suspect]
     Active Substance: CYTARABINE
     Indication: DIFFUSE LARGE B-CELL LYMPHOMA STAGE IV
     Dosage: INDUCTION CHEMOTHERAPY WITHIN THE PROTOCOL LL03
     Route: 065
  18. ARACYTINE [Suspect]
     Active Substance: CYTARABINE
     Dosage: 2 INJECTIONS ON D1 AND D2
     Route: 065
     Dates: start: 20150803
  19. HEMISUCCINATE OF HYDROCORTISONE [Suspect]
     Active Substance: HYDROCORTISONE HEMISUCCINATE
     Indication: DIFFUSE LARGE B-CELL LYMPHOMA STAGE IV
     Dosage: SECOND BLOCK OF THE FIRST CONSOLIDATION
     Route: 065
  20. METHYLPREDNISOLONE. [Suspect]
     Active Substance: METHYLPREDNISOLONE
     Indication: DIFFUSE LARGE B-CELL LYMPHOMA STAGE IV
     Dosage: 2 INJECTIONS ON D1 AND D2; THIRD BLOCK OF THE FIRST CONSOLIDATION
     Route: 065
     Dates: start: 20150803
  21. CALCIUM FOLINATE [Suspect]
     Active Substance: LEUCOVORIN CALCIUM
     Indication: DIFFUSE LARGE B-CELL LYMPHOMA STAGE IV
     Route: 042
     Dates: start: 20151002, end: 20151003
  22. CELLTOP 100 MG/5 ML, SOLUTION INJECTABLE POUR PERFUSION [Suspect]
     Active Substance: ETOPOSIDE
     Indication: DIFFUSE LARGE B-CELL LYMPHOMA STAGE IV
     Dosage: D1 AND D2; FIRST BLOCK OF CONSOLIDATION
     Route: 065
     Dates: start: 20150707
  23. DOXORUBICIN HYDROCHLORIDE. [Suspect]
     Active Substance: DOXORUBICIN HYDROCHLORIDE
     Indication: DIFFUSE LARGE B-CELL LYMPHOMA STAGE IV
     Dosage: D2
     Route: 042
     Dates: start: 20151002, end: 20151002
  24. L-ASPARAGINASE [Suspect]
     Active Substance: ASPARAGINASE
     Indication: DIFFUSE LARGE B-CELL LYMPHOMA STAGE IV
     Dosage: 6000 U/M2; D20, D22, D24, D28; INDUCTION CHEMOTHERAPY WITHIN THE PROTOCOL LL03
     Route: 065
  25. METHOTREXATE [Suspect]
     Active Substance: METHOTREXATE
     Dosage: TRIPLE LP
     Route: 037
  26. PURINETHOL [Suspect]
     Active Substance: MERCAPTOPURINE
     Indication: DIFFUSE LARGE B-CELL LYMPHOMA STAGE IV
     Dosage: D6 AND D7
     Route: 065
  27. METHOTREXATE (METHOTREXATE SODIUM) [Suspect]
     Active Substance: METHOTREXATE SODIUM
     Indication: DIFFUSE LARGE B-CELL LYMPHOMA STAGE IV
     Dosage: 5000 MG/M?; AROUND 36HOURS
     Route: 042
     Dates: start: 20151001, end: 20151002
  28. VINCRISTINE SULFATE. [Suspect]
     Active Substance: VINCRISTINE SULFATE
     Indication: DIFFUSE LARGE B-CELL LYMPHOMA STAGE IV
     Dosage: D1;1ST CURE OF COP CHEMOTHERAPY
     Route: 065
     Dates: start: 20150522
  29. L-ASPARAGINASE [Suspect]
     Active Substance: ASPARAGINASE
     Dosage: 10000U ON D3
     Route: 065
  30. VINCRISTINE SULFATE. [Suspect]
     Active Substance: VINCRISTINE SULFATE
     Dosage: D1, D8, D15 AND D22; INDUCTION CHEMOTHERAPY WITHIN THE PROTOCOL LL03
     Route: 065
     Dates: start: 20150529
  31. L-ASPARAGINASE [Suspect]
     Active Substance: ASPARAGINASE
     Dosage: 100 U ON D2; SECOND BLOCK OF THE FIRST CONSOLIDATION
     Route: 065
  32. L-ASPARAGINASE [Suspect]
     Active Substance: ASPARAGINASE
     Dosage: 10000 U/M2 AFTER D2; SECOND BLOCK OF THE FIRST CONSOLIDATION
     Route: 065
  33. ARACYTINE [Suspect]
     Active Substance: CYTARABINE
     Route: 065
  34. ARACYTINE [Suspect]
     Active Substance: CYTARABINE
     Route: 065
  35. ENDOXAN 1000 MG, POUDRE POUR SOLUTION INJECTABLE [Suspect]
     Active Substance: CYCLOPHOSPHAMIDE
     Dosage: D1; INDUCTION CHEMOTHERAPY WITHIN THE PROTOCOL LL03
     Route: 065
     Dates: start: 20150529
  36. ENDOXAN 1000 MG, POUDRE POUR SOLUTION INJECTABLE [Suspect]
     Active Substance: CYCLOPHOSPHAMIDE
     Dosage: D1 AND D2; FIRST BLOCK OF CONSOLIDATION
     Route: 065
     Dates: start: 20150707
  37. DAUNORUBICINE [Suspect]
     Active Substance: DAUNORUBICIN
     Indication: DIFFUSE LARGE B-CELL LYMPHOMA STAGE IV
     Dosage: D1 - D3; INDUCTION CHEMOTHERAPY WITHIN THE PROTOCOL LL03
     Route: 065
     Dates: start: 20150529
  38. DAUNORUBICINE [Suspect]
     Active Substance: DAUNORUBICIN
     Dosage: D15 - D16; INDUCTION CHEMOTHERAPY WITHIN THE PROTOCOL LL03
     Route: 065
  39. METHOTREXATE [Suspect]
     Active Substance: METHOTREXATE
     Indication: DIFFUSE LARGE B-CELL LYMPHOMA STAGE IV
     Dosage: INDUCTION CHEMOTHERAPY WITHIN THE PROTOCOL LL03
     Route: 037
  40. METHOTREXATE [Suspect]
     Active Substance: METHOTREXATE
     Dosage: D1; SECOND BLOCK OF THE FIRST CONSOLIDATION
     Route: 065
     Dates: start: 20150720

REACTIONS (9)
  - Mucosal inflammation [Recovering/Resolving]
  - Overdose [Recovered/Resolved]
  - Acute kidney injury [Not Recovered/Not Resolved]
  - Febrile bone marrow aplasia [Unknown]
  - Thrombocytopenia [Recovered/Resolved]
  - Diffuse large B-cell lymphoma recurrent [Unknown]
  - Cellulitis [Unknown]
  - Metastases to meninges [Unknown]
  - Asthenia [Unknown]

NARRATIVE: CASE EVENT DATE: 20150918
